FAERS Safety Report 4454747-1 (Version None)
Quarter: 2004Q3

REPORT INFORMATION
  Report Type: 
  Country: None (occurrence: None)
  Receive Date: 20040917
  Receipt Date: 20040917
  Transmission Date: 20050211
  Serious: Yes (Other)
  Sender: FDA-Public Use
  Company Number: None

PATIENT
  Age: 4 Year
  Sex: Female
  Weight: 12.7007 kg

DRUGS (1)
  1. AMOXICILLIN .5/5 SUSP GENEVA [Suspect]
     Indication: ANTI-INFECTIVE THERAPY
     Dosage: 2 TABLETS TWICE A DAY ORAL
     Route: 048

REACTIONS (1)
  - MEDICATION ERROR [None]
